FAERS Safety Report 14946125 (Version 1)
Quarter: 2018Q2

REPORT INFORMATION
  Report Type: Spontaneous
  Country: US (occurrence: US)
  Receive Date: 20180529
  Receipt Date: 20180529
  Transmission Date: 20180711
  Serious: Yes (Hospitalization, Other)
  Sender: FDA-Public Use
  Company Number: US-APOTEX-2018AP014989

PATIENT
  Age: 62 Year
  Sex: Male

DRUGS (6)
  1. VANCOMYCIN [Concomitant]
     Active Substance: VANCOMYCIN
     Indication: BACTERAEMIA
  2. ACYCLOVIR                          /00587301/ [Interacting]
     Active Substance: ACYCLOVIR
     Dosage: 12.1 MG/KG, BID
     Route: 042
  3. MYCOPHENOLATE [Suspect]
     Active Substance: MYCOPHENOLIC ACID
     Indication: IMMUNOSUPPRESSANT DRUG THERAPY
     Route: 065
  4. ACYCLOVIR                          /00587301/ [Interacting]
     Active Substance: ACYCLOVIR
     Indication: VARICELLA ZOSTER VIRUS INFECTION
     Route: 042
  5. TACROLIMUS. [Suspect]
     Active Substance: TACROLIMUS
     Indication: IMMUNOSUPPRESSANT DRUG THERAPY
     Route: 065
  6. VANCOMYCIN [Concomitant]
     Active Substance: VANCOMYCIN
     Indication: EVIDENCE BASED TREATMENT
     Dosage: 15 MG/KG, EVERY 18 HOURS
     Route: 042

REACTIONS (5)
  - Drug interaction [Unknown]
  - Herpes zoster meningoencephalitis [Unknown]
  - Staphylococcal bacteraemia [Unknown]
  - Endocarditis [Unknown]
  - Herpes zoster [Unknown]
